FAERS Safety Report 9492202 (Version 2)
Quarter: 2013Q3

REPORT INFORMATION
  Report Type: Spontaneous
  Country: CA (occurrence: CA)
  Receive Date: 20130830
  Receipt Date: 20130830
  Transmission Date: 20140515
  Serious: Yes (Other)
  Sender: FDA-Public Use
  Company Number: CA-ELI_LILLY_AND_COMPANY-CA201305002094

PATIENT
  Age: 48 Year
  Sex: Male
  Weight: 104.31 kg

DRUGS (10)
  1. CYMBALTA [Suspect]
     Indication: ANXIETY
     Dosage: 60 MG, QD
     Route: 048
     Dates: start: 20121002, end: 20121004
  2. CYMBALTA [Suspect]
     Indication: DEPRESSION
  3. CIPRALEX [Suspect]
     Indication: ANXIETY
     Dosage: 10 MG, QD
     Dates: start: 20121009, end: 20121020
  4. CIPRALEX [Suspect]
     Indication: DEPRESSION
  5. ASA [Concomitant]
     Dosage: 325 MG, QD
  6. ATENOLOL [Concomitant]
     Dosage: 25 MG, QD
     Route: 048
  7. MULTAQ [Concomitant]
     Route: 048
  8. PERCOCET [Concomitant]
     Dosage: 1 DF, TID
     Route: 048
     Dates: start: 20120917
  9. SYNTHROID [Concomitant]
     Dosage: 0.1 MG, QD
  10. ZOPICLONE [Concomitant]
     Dosage: 7.5 MG, EACH EVENING

REACTIONS (9)
  - Injury [Recovered/Resolved]
  - Hypervigilance [Recovered/Resolved]
  - Depressed mood [Recovered/Resolved]
  - Abnormal dreams [Recovered/Resolved]
  - Anxiety [Recovered/Resolved]
  - Condition aggravated [Recovered/Resolved]
  - Hallucination [Recovered/Resolved]
  - Tremor [Recovered/Resolved]
  - Vomiting [Recovered/Resolved]
